FAERS Safety Report 16850812 (Version 1)
Quarter: 2019Q3

REPORT INFORMATION
  Report Type: Spontaneous
  Country: US (occurrence: US)
  Receive Date: 20190925
  Receipt Date: 20190925
  Transmission Date: 20191005
  Serious: No
  Sender: FDA-Public Use
  Company Number: US-THERAPEUTICSMD-2019TMD01301

PATIENT
  Age: 57 Year
  Sex: Female
  Weight: 71.66 kg

DRUGS (10)
  1. CANDESARTAN. [Concomitant]
     Active Substance: CANDESARTAN
  2. IMVEXXY [Suspect]
     Active Substance: ESTRADIOL
     Indication: HORMONE LEVEL ABNORMAL
     Dosage: 10 ?G, 1X/DAY IN THE MORNING AND REMAINED UPRIGHT AND ACTIVE AFTER INSERTION
     Route: 067
     Dates: start: 20190513, end: 20190526
  3. WOMEN^S OVER 50 ONE A DAY VITAMIN [Concomitant]
  4. TRAZODONE [Concomitant]
     Active Substance: TRAZODONE HYDROCHLORIDE
     Dosage: 50 MG, 1X/DAY AT BEDTIME
  5. RIZATRIPTAN. [Concomitant]
     Active Substance: RIZATRIPTAN
     Dosage: 4 MG, UP TO 3X/WEEK
     Route: 048
  6. MELOXICAM. [Concomitant]
     Active Substance: MELOXICAM
     Dosage: 15 MG, 1X/DAY
     Route: 048
  7. BOTOX [Concomitant]
     Active Substance: ONABOTULINUMTOXINA
     Dosage: UNK
     Dates: start: 20190503
  8. IMVEXXY [Suspect]
     Active Substance: ESTRADIOL
     Indication: VULVOVAGINAL DRYNESS
     Dosage: 10 ?G, 2X/WEEK IN THE MORNING IN THE MORNING AND REMAINED UPRIGHT AND ACTIVE AFTER INSERTION
     Route: 067
     Dates: start: 20190527
  9. CALCIUM [Concomitant]
     Active Substance: CALCIUM
  10. NITROFURANTOIN. [Concomitant]
     Active Substance: NITROFURANTOIN
     Dosage: AS NEEDED

REACTIONS (4)
  - Off label use [Not Recovered/Not Resolved]
  - Night sweats [Not Recovered/Not Resolved]
  - Product substitution issue [Not Recovered/Not Resolved]
  - Hot flush [Not Recovered/Not Resolved]

NARRATIVE: CASE EVENT DATE: 201905
